FAERS Safety Report 7238555-4 (Version None)
Quarter: 2011Q1

REPORT INFORMATION
  Report Type: 
  Country: None (occurrence: None)
  Receive Date: 20110119
  Receipt Date: 20110119
  Transmission Date: 20110831
  Serious: Yes (Other)
  Sender: FDA-Public Use
  Company Number: None

PATIENT
  Age: 26 Year
  Sex: Female
  Weight: 47.6277 kg

DRUGS (1)
  1. PREDNISONE 40MG [Suspect]
     Indication: ASTHMA
     Dosage: IT VARIED 3 TIMES A DAY

REACTIONS (1)
  - OSTEONECROSIS [None]
